FAERS Safety Report 4277537-1 (Version None)
Quarter: 2004Q1

REPORT INFORMATION
  Report Type: 
  Country: None (occurrence: None)
  Receive Date: 20040121
  Receipt Date: 20040116
  Transmission Date: 20041129
  Serious: Yes (Death)
  Sender: FDA-Public Use
  Company Number: US-JNJFOC-2031103879

PATIENT
  Age: 59 Year
  Sex: Male

DRUGS (12)
  1. SPORANOX [Suspect]
     Dosage: 300 MG, 2 IN 1 DAY, ORAL
     Route: 048
  2. PREDNISONE [Concomitant]
  3. CELLCEPT [Concomitant]
  4. CYCLOSPORINE [Concomitant]
  5. TRIAMCINOLONE [Concomitant]
  6. DIFLUCAN [Concomitant]
  7. FOSCARNET [Concomitant]
  8. ROCEPHIN [Concomitant]
  9. NEXIUM [Concomitant]
  10. ZOLOFT [Concomitant]
  11. MULTIVITAMIN [Concomitant]
  12. K-DUR 10 [Concomitant]

REACTIONS (1)
  - DEATH [None]
